FAERS Safety Report 8762744 (Version 6)
Quarter: 2012Q4

REPORT INFORMATION
  Report Type: 
  Country: US (occurrence: US)
  Receive Date: 20120830
  Receipt Date: 20121116
  Transmission Date: 20130627
  Serious: Yes (Hospitalization, Disabling)
  Sender: FDA-Public Use
  Company Number: US-009507513-1208USA011098

PATIENT
  Age: 54 Year
  Sex: Male
  Weight: 58.5 kg

DRUGS (15)
  1. PEGINTRON [Suspect]
     Indication: HEPATITIS C
     Dosage: 96 Microgram, qw
     Route: 058
     Dates: start: 20120612, end: 20120818
  2. RIBAVIRIN [Suspect]
     Indication: HEPATITIS C
     Dosage: 400 mg, bid
     Route: 048
     Dates: start: 20120612, end: 20120818
  3. TELAPREVIR [Suspect]
     Indication: HEPATITIS C
     Dosage: 750 mg, q8h
     Dates: start: 20120807, end: 20120818
  4. LITHIUM [Concomitant]
  5. ABACAVIR [Concomitant]
  6. PROCRIT [Concomitant]
     Dosage: UNK
     Dates: start: 20120717, end: 20120818
  7. LAMIVUDINE [Concomitant]
  8. ATAZANAVIR [Concomitant]
  9. BENZTROPINE MESYLATE [Concomitant]
  10. CYCLOBENZAPRINE HYDROCHLORIDE [Concomitant]
  11. GABAPENTIN [Concomitant]
  12. HYDROCODONE/APAP [Concomitant]
  13. PROPRANOLOL HYDROCHLORIDE [Concomitant]
  14. RITONAVIR [Concomitant]
  15. TAMSULOSIN HYDROCHLORIDE [Concomitant]

REACTIONS (9)
  - Ataxia [Not Recovered/Not Resolved]
  - Syncope [Not Recovered/Not Resolved]
  - Abasia [Not Recovered/Not Resolved]
  - Lethargy [Not Recovered/Not Resolved]
  - Dysarthria [Not Recovered/Not Resolved]
  - Pneumonia [Not Recovered/Not Resolved]
  - Dysphagia [Recovered/Resolved]
  - Anaemia [Unknown]
  - Tardive dyskinesia [Unknown]
